FAERS Safety Report 8382469 (Version 4)
Quarter: 2014Q1

REPORT INFORMATION
  Report Type: Report from Study
  Country: GB (occurrence: GB)
  Receive Date: 20120201
  Receipt Date: 20140319
  Transmission Date: 20141002
  Serious: Yes (Death, Hospitalization)
  Sender: FDA-Public Use
  Company Number: GB-ROCHE-1033901

PATIENT
  Age: 78 Year
  Sex: Female
  Weight: 63 kg

DRUGS (2)
  1. RITUXIMAB [Suspect]
     Indication: RHEUMATOID ARTHRITIS
     Route: 065
     Dates: start: 20090914, end: 20091015
  2. METHOTREXATE [Concomitant]
     Route: 065
     Dates: start: 20110610

REACTIONS (4)
  - Metastatic renal cell carcinoma [Fatal]
  - Cardiac failure congestive [Fatal]
  - Renal failure chronic [Fatal]
  - Myocardial infarction [Unknown]
